FAERS Safety Report 7245998-1 (Version None)
Quarter: 2011Q1

REPORT INFORMATION
  Report Type: 
  Country: None (occurrence: None)
  Receive Date: 20110126
  Receipt Date: 20110119
  Transmission Date: 20110831
  Serious: Yes (Other)
  Sender: FDA-Public Use
  Company Number: US-PFIZER INC-2011013209

PATIENT

DRUGS (1)
  1. RELISTOR [Suspect]
     Indication: POSTOPERATIVE ILEUS
     Dosage: UNK
     Dates: start: 20101101

REACTIONS (2)
  - WEIGHT DECREASED [None]
  - DIARRHOEA [None]
